FAERS Safety Report 9818524 (Version 1)
Quarter: 2014Q1

REPORT INFORMATION
  Report Type: Spontaneous
  Country: US (occurrence: US)
  Receive Date: 20140115
  Receipt Date: 20140115
  Transmission Date: 20141002
  Serious: Yes (Other)
  Sender: FDA-Public Use
  Company Number: US-BAYER-2014-005915

PATIENT
  Age: 66 Year
  Sex: Female

DRUGS (1)
  1. MIRENA [Suspect]
     Indication: ENDOMETRIAL HYPERTROPHY
     Dosage: 20 MCG/24HR, CONT
     Route: 015
     Dates: start: 2013

REACTIONS (3)
  - Genital haemorrhage [None]
  - Abdominal pain lower [None]
  - Off label use [None]
